FAERS Safety Report 4555109-9 (Version None)
Quarter: 2005Q1

REPORT INFORMATION
  Report Type: 
  Country: None (occurrence: None)
  Receive Date: 20041228
  Receipt Date: 20040921
  Transmission Date: 20050727
  Serious: Yes (Other)
  Sender: FDA-Public Use
  Company Number: PHEH2004US04239

PATIENT
  Age: 63 Year
  Sex: Male

DRUGS (6)
  1. AREDIA [Suspect]
     Indication: MULTIPLE MYELOMA
     Dosage: 90 MG, QMO
     Dates: start: 20020901, end: 20031201
  2. METHYLPREDNISOLONE [Concomitant]
  3. VINCRISTINE + ADRIAMYCIN + DEXAMETHASONE (VINCRISTINE SULFATE, DOXORUB [Concomitant]
  4. THALIDOMID (THALIDOMIDE) [Concomitant]
  5. DECADRON [Concomitant]
  6. CYTARABINE [Concomitant]

REACTIONS (3)
  - OSTEONECROSIS [None]
  - TOOTH EXTRACTION [None]
  - WOUND DEBRIDEMENT [None]
